FAERS Safety Report 14939733 (Version 1)
Quarter: 2018Q2

REPORT INFORMATION
  Report Type: Spontaneous
  Country: US (occurrence: US)
  Receive Date: 20180507
  Receipt Date: 20180507
  Transmission Date: 20180711
  Serious: No
  Sender: FDA-Public Use
  Company Number: None

PATIENT
  Sex: Female

DRUGS (7)
  1. OCALIVA [Suspect]
     Active Substance: OBETICHOLIC ACID
     Indication: PRIMARY BILIARY CHOLANGITIS
     Route: 048
     Dates: start: 20170622
  2. FELODIPINE. [Concomitant]
     Active Substance: FELODIPINE
  3. GABAPENTIN. [Concomitant]
     Active Substance: GABAPENTIN
  4. ZOMIG [Concomitant]
     Active Substance: ZOLMITRIPTAN
  5. PROCHLORPERAZINE. [Concomitant]
     Active Substance: PROCHLORPERAZINE
  6. URSODIOL. [Concomitant]
     Active Substance: URSODIOL
  7. FORTEO [Concomitant]
     Active Substance: TERIPARATIDE

REACTIONS (2)
  - Arthralgia [None]
  - Fatigue [None]
